FAERS Safety Report 10364590 (Version 1)
Quarter: 2014Q3

REPORT INFORMATION
  Report Type: Spontaneous
  Country: US (occurrence: None)
  Receive Date: 20140804
  Receipt Date: 20140804
  Transmission Date: 20150326
  Serious: No
  Sender: FDA-Public Use
  Company Number: None

PATIENT
  Age: 62 Year
  Sex: Male
  Weight: 117.94 kg

DRUGS (1)
  1. NASACORT ALLERGY 24HR [Suspect]
     Active Substance: TRIAMCINOLONE ACETONIDE
     Indication: RHINITIS ALLERGIC
     Dosage: 2 SPRAYS PER NOSTRIL, DAILY
     Route: 055
     Dates: start: 20140730, end: 20140801

REACTIONS (5)
  - Irritability [None]
  - Agitation [None]
  - Initial insomnia [None]
  - Abnormal dreams [None]
  - Ill-defined disorder [None]

NARRATIVE: CASE EVENT DATE: 20140801
